FAERS Safety Report 20909299 (Version 1)
Quarter: 2022Q2

REPORT INFORMATION
  Report Type: Spontaneous
  Country: JP (occurrence: None)
  Receive Date: 20220603
  Receipt Date: 20220603
  Transmission Date: 20220721
  Serious: Yes (Other)
  Sender: FDA-Public Use
  Company Number: JP-MLMSERVICE-20220525-3578207-1

PATIENT
  Age: 75 Year
  Sex: Male

DRUGS (4)
  1. ENTACAPONE [Suspect]
     Active Substance: ENTACAPONE
     Indication: Parkinson^s disease
     Route: 048
  2. LEVODOPA [Suspect]
     Active Substance: LEVODOPA
     Indication: Parkinson^s disease
     Route: 048
  3. CARBIDOPA [Suspect]
     Active Substance: CARBIDOPA
     Indication: Parkinson^s disease
     Route: 048
  4. CARBIDOPA\LEVODOPA [Suspect]
     Active Substance: CARBIDOPA\LEVODOPA
     Indication: Parkinson^s disease
     Dosage: LEVODOPA 1,040 MG/DAY WITH CARBIDOPA 260 MG/DAY, INFUSION TIME 16 H
     Route: 065

REACTIONS (3)
  - Anaemia vitamin B6 deficiency [Recovered/Resolved]
  - Aspartate aminotransferase decreased [Recovered/Resolved]
  - Alanine aminotransferase decreased [Recovered/Resolved]
